FAERS Safety Report 4759808-5 (Version None)
Quarter: 2005Q3

REPORT INFORMATION
  Report Type: 
  Country: None (occurrence: None)
  Receive Date: 20050831
  Receipt Date: 20050831
  Transmission Date: 20060218
  Serious: Yes (Life-Threatening, Hospitalization)
  Sender: FDA-Public Use
  Company Number: None

PATIENT
  Age: 27 Year
  Sex: Male
  Weight: 58 kg

DRUGS (8)
  1. DIAZEPAM [Suspect]
     Indication: GRAND MAL CONVULSION
     Dosage: 10 MG ONCE PR
     Dates: start: 20050720, end: 20050720
  2. METOCLOPERAIDE [Concomitant]
  3. PHENYTOIN [Concomitant]
  4. RANITIDINE HCL [Concomitant]
  5. VANCOMYCIN [Concomitant]
  6. TAZOCIN [Concomitant]
  7. ATENOLOL [Concomitant]
  8. DEXAMETHASONE [Concomitant]

REACTIONS (2)
  - RESPIRATORY ARREST [None]
  - RESPIRATORY DEPRESSION [None]
